FAERS Safety Report 9203503 (Version 2)
Quarter: 2013Q2

REPORT INFORMATION
  Report Type: Spontaneous
  Country: US (occurrence: US)
  Receive Date: 20130402
  Receipt Date: 20130529
  Transmission Date: 20140414
  Serious: No
  Sender: FDA-Public Use
  Company Number: US-PFIZER INC-2013103194

PATIENT
  Age: 81 Year
  Sex: Male
  Weight: 90.7 kg

DRUGS (1)
  1. ADVIL ALLERGY SINUS [Suspect]
     Indication: SINUS DISORDER
     Dosage: UNK
     Dates: start: 201303, end: 201303

REACTIONS (1)
  - Drug ineffective [Unknown]
